FAERS Safety Report 4391623-7 (Version None)
Quarter: 2004Q3

REPORT INFORMATION
  Report Type: 
  Country: None (occurrence: None)
  Receive Date: 20040701
  Receipt Date: 20040610
  Transmission Date: 20050211
  Serious: Yes (Hospitalization)
  Sender: FDA-Public Use
  Company Number: USA040669820

PATIENT
  Age: 79 Year
  Sex: Male
  Weight: 49 kg

DRUGS (2)
  1. HUMULIN L [Suspect]
     Dosage: 10 U DAY
     Dates: start: 19970101
  2. LENTE ILETIN II (PORK) [Suspect]
     Dates: end: 19970101

REACTIONS (8)
  - BLOOD SODIUM DECREASED [None]
  - HYPOACUSIS [None]
  - JOINT SWELLING [None]
  - MALABSORPTION [None]
  - OEDEMA PERIPHERAL [None]
  - RASH PRURITIC [None]
  - URTICARIA [None]
  - WEIGHT DECREASED [None]
